FAERS Safety Report 4279616-1 (Version None)
Quarter: 2004Q1

REPORT INFORMATION
  Report Type: 
  Country: None (occurrence: None)
  Receive Date: 20040123
  Receipt Date: 20040112
  Transmission Date: 20041129
  Serious: Yes (Other)
  Sender: FDA-Public Use
  Company Number: 12475554

PATIENT
  Age: 32 Year
  Sex: Female

DRUGS (1)
  1. HYDROXYUREA [Suspect]
     Indication: HAEMOGLOBIN C DISEASE
     Dosage: 1000 MILLIGRAM, 1 DAY
     Dates: start: 20010301

REACTIONS (6)
  - ABDOMINAL PAIN [None]
  - EARLY SATIETY [None]
  - NAUSEA [None]
  - SPLEEN CONGESTION [None]
  - SPLENOMEGALY [None]
  - THROMBOCYTOPENIA [None]
